FAERS Safety Report 15658168 (Version 1)
Quarter: 2018Q4

REPORT INFORMATION
  Report Type: Spontaneous
  Country: US (occurrence: US)
  Receive Date: 20181126
  Receipt Date: 20181126
  Transmission Date: 20190205
  Serious: No
  Sender: FDA-Public Use
  Company Number: US-SUNOVION-2018SUN004556

PATIENT
  Age: 70 Year
  Sex: Male
  Weight: 72.56 kg

DRUGS (3)
  1. ZOLOFT [Concomitant]
     Active Substance: SERTRALINE HYDROCHLORIDE
     Dosage: UNK
  2. LATUDA [Suspect]
     Active Substance: LURASIDONE HYDROCHLORIDE
     Indication: BIPOLAR DISORDER
     Dosage: 1/2 40 MG TABLET QPM WITH FOOD, QD
     Route: 048
     Dates: start: 201811
  3. LAMOTRIGINE. [Concomitant]
     Active Substance: LAMOTRIGINE
     Dosage: 200 MG, QD

REACTIONS (6)
  - Akathisia [Recovering/Resolving]
  - Tremor [Unknown]
  - Somnolence [Unknown]
  - Dizziness [Unknown]
  - Agitation [Recovering/Resolving]
  - Off label use [Unknown]

NARRATIVE: CASE EVENT DATE: 201811
